FAERS Safety Report 8333175-2 (Version None)
Quarter: 2012Q2

REPORT INFORMATION
  Report Type: 
  Country: None (occurrence: None)
  Receive Date: 20120503
  Receipt Date: 20120426
  Transmission Date: 20120825
  Serious: Yes (Hospitalization, Other)
  Sender: FDA-Public Use
  Company Number: IE-PFIZER INC-2012104480

PATIENT
  Age: 65 Year
  Sex: Male

DRUGS (2)
  1. TOVIAZ [Suspect]
     Dosage: 4 MG, UNK
  2. AMITRIPTYLINE [Concomitant]

REACTIONS (1)
  - URINARY TRACT OBSTRUCTION [None]
